FAERS Safety Report 10422791 (Version 4)
Quarter: 2014Q4

REPORT INFORMATION
  Report Type: Report from Study
  Country: ZA (occurrence: ZA)
  Receive Date: 20140902
  Receipt Date: 20141104
  Transmission Date: 20150528
  Serious: Yes (Hospitalization)
  Sender: FDA-Public Use
  Company Number: ZA-BIOGENIDEC-2014BI085105

PATIENT
  Age: 58 Year
  Sex: Male
  Weight: 59 kg

DRUGS (8)
  1. ANTIHEMOPHILIC FACTOR (RECOMBINANT), FC FUSION PROTEIN [Suspect]
     Active Substance: (1-743)-(1638-2332)-BLOOD-COAGULATION FACTOR VIII (SYNTHETIC HUMAN) FUSION PROTEIN WITH IMMUNOGLOBULIN G1 (SYNTHETIC HUMAN FC DOMAIN FRAGMENT), (1444-6^),(1447-9^)-BIS(DISULFIDE) WITH IMMUNOGLOBULIN G1 (SYNTHETIC HUMAN FC DOMAIN FRAGMENT)
     Indication: FACTOR VIII DEFICIENCY
     Route: 042
     Dates: start: 20120618
  2. INDOCIN [Concomitant]
     Active Substance: INDOMETHACIN\INDOMETHACIN SODIUM
     Indication: HAEMOPHILIC ARTHROPATHY
     Route: 048
     Dates: start: 2008
  3. STILPANE [Concomitant]
     Indication: ARTHRALGIA
     Route: 048
     Dates: start: 2000
  4. STILPANE [Concomitant]
     Indication: ARTHRALGIA
     Route: 048
     Dates: start: 20140824
  5. CIMETIDINE [Concomitant]
     Active Substance: CIMETIDINE
     Indication: HAEMORRHAGE PROPHYLAXIS
     Route: 048
     Dates: start: 2007
  6. STILPANE [Concomitant]
     Indication: HAEMOPHILIC ARTHROPATHY
     Route: 048
     Dates: start: 20140824
  7. TRAMAL [Concomitant]
     Active Substance: TRAMADOL
     Indication: PAIN MANAGEMENT
     Route: 048
     Dates: start: 20130424
  8. STILPANE [Concomitant]
     Indication: HAEMOPHILIC ARTHROPATHY
     Route: 048
     Dates: start: 2000

REACTIONS (1)
  - Haemophilic arthropathy [Recovered/Resolved]

NARRATIVE: CASE EVENT DATE: 20140821
